FAERS Safety Report 9542516 (Version 2)
Quarter: 2014Q1

REPORT INFORMATION
  Report Type: Spontaneous
  Country: US (occurrence: None)
  Receive Date: 20130524
  Receipt Date: 20130724
  Transmission Date: 20141002
  Serious: No
  Sender: FDA-Public Use
  Company Number: PHEH2013US003732

PATIENT
  Age: 56 Year
  Sex: Female

DRUGS (10)
  1. GILENYA [Suspect]
     Indication: MULTIPLE SCLEROSIS
     Route: 048
     Dates: start: 20121221
  2. NORCO (HYDROCODONE BITARTRATE, PARACETAMOL) [Concomitant]
  3. VITAMIN D (ERGOCALCIFEROL) [Concomitant]
  4. CYMBALTA (DULOXETINE HYDROCHLORIDE) [Concomitant]
  5. HYDROCHLOROTHIAZIDE (HYDROCHLOROTHIAZIDE) [Concomitant]
  6. CARVEDILOL (CARVEDILOL) [Concomitant]
  7. PROVIGIL (MODAFINIL) [Concomitant]
  8. LYRICA (PREGABALIN) [Concomitant]
  9. ARICEPT (DONEPEZIL HYDROCHLORIDE) [Concomitant]
  10. RESTORIL (TEMAZEPAM) [Concomitant]

REACTIONS (4)
  - Influenza like illness [None]
  - Malaise [None]
  - Paraesthesia [None]
  - Asthenia [None]
